FAERS Safety Report 11117646 (Version 1)
Quarter: 2015Q2

REPORT INFORMATION
  Report Type: Spontaneous
  Country: TR (occurrence: TR)
  Receive Date: 20150517
  Receipt Date: 20150517
  Transmission Date: 20150821
  Serious: Yes (Death, Other)
  Sender: FDA-Public Use
  Company Number: TR-UCBSA-2015014763

PATIENT
  Age: 49 Year
  Sex: Female
  Weight: 73 kg

DRUGS (9)
  1. DUOCID [Concomitant]
     Indication: THROMBOCYTOPENIA
  2. NEUPOGEN [Concomitant]
     Active Substance: FILGRASTIM
     Indication: THROMBOCYTOPENIA
  3. MTX [Concomitant]
     Active Substance: METHOTREXATE SODIUM
     Indication: PRODUCT USED FOR UNKNOWN INDICATION
     Dosage: 200 MG, UNK
     Route: 042
     Dates: start: 20150422
  4. DIAZOMID [Concomitant]
     Indication: PRODUCT USED FOR UNKNOWN INDICATION
     Dosage: 250 MG, 2X/DAY (BID)
     Route: 048
     Dates: start: 20150420
  5. KEPPRA [Suspect]
     Active Substance: LEVETIRACETAM
     Indication: OFF LABEL USE
  6. KORDEXA [Concomitant]
     Active Substance: DEXAMETHASONE
     Indication: PRODUCT USED FOR UNKNOWN INDICATION
     Dosage: 4 MG, 3X/DAY (TID)
     Route: 048
     Dates: start: 20150420
  7. KEPPRA [Suspect]
     Active Substance: LEVETIRACETAM
     Indication: METASTASES TO MENINGES
     Dosage: 2 DF, UNK
     Route: 048
     Dates: start: 20150424
  8. DUOCID [Concomitant]
     Indication: FEBRILE NEUTROPENIA
     Dosage: 1 G, 4X/DAY (QID)
     Route: 042
     Dates: start: 20150427
  9. NEUPOGEN [Concomitant]
     Active Substance: FILGRASTIM
     Indication: FEBRILE NEUTROPENIA
     Dosage: 30 MU
     Route: 058
     Dates: start: 20150428

REACTIONS (4)
  - Thrombocytopenia [Fatal]
  - Off label use [Unknown]
  - Sepsis [Fatal]
  - Febrile neutropenia [Fatal]

NARRATIVE: CASE EVENT DATE: 201504
